FAERS Safety Report 21316010 (Version 4)
Quarter: 2022Q4

REPORT INFORMATION
  Report Type: Report from Study
  Country: US (occurrence: US)
  Receive Date: 20220910
  Receipt Date: 20221108
  Transmission Date: 20230113
  Serious: No
  Sender: FDA-Public Use
  Company Number: US-NOVARTISTESTPH-NVSC2022US203402

PATIENT
  Sex: Male

DRUGS (1)
  1. COSENTYX [Suspect]
     Active Substance: SECUKINUMAB
     Indication: Psoriasis
     Dosage: 300 MG, QMO
     Route: 058

REACTIONS (5)
  - Arthralgia [Recovering/Resolving]
  - Psoriasis [Not Recovered/Not Resolved]
  - Skin discolouration [Unknown]
  - Skin lesion [Unknown]
  - Rash [Unknown]
